FAERS Safety Report 9474130 (Version 2)
Quarter: 2013Q3

REPORT INFORMATION
  Report Type: Spontaneous
  Country: None (occurrence: US)
  Receive Date: 20130823
  Receipt Date: 20130829
  Transmission Date: 20140515
  Serious: Yes (Hospitalization)
  Sender: FDA-Public Use
  Company Number: US-ABBOTT-13P-163-1136584-00

PATIENT
  Age: 32 Year
  Sex: Male
  Weight: 83.99 kg

DRUGS (4)
  1. ANDROGEL 1% [Suspect]
     Indication: BLOOD TESTOSTERONE DECREASED
     Route: 061
     Dates: start: 2012, end: 2012
  2. ANDROGEL 1.62% [Suspect]
     Indication: BLOOD TESTOSTERONE DECREASED
     Route: 061
     Dates: start: 2012
  3. WELLBUTRIN [Concomitant]
     Indication: DEPRESSION
  4. SUBOXONE [Concomitant]
     Indication: DRUG DEPENDENCE

REACTIONS (6)
  - Encephalitis [Recovered/Resolved]
  - Brain oedema [Recovered/Resolved]
  - Pharyngitis [Recovered/Resolved]
  - Mobility decreased [Recovering/Resolving]
  - Lymphadenopathy [Recovered/Resolved]
  - Blood testosterone decreased [Not Recovered/Not Resolved]
